FAERS Safety Report 7292617-4 (Version None)
Quarter: 2011Q1

REPORT INFORMATION
  Report Type: 
  Country: None (occurrence: None)
  Receive Date: 20110215
  Receipt Date: 20101220
  Transmission Date: 20110831
  Serious: Yes (Death, Life-Threatening, Hospitalization)
  Sender: FDA-Public Use
  Company Number: TW-BAYER-2010-005187

PATIENT
  Sex: Male
  Weight: 67 kg

DRUGS (10)
  1. BROWN MIXTURE [Concomitant]
     Indication: COUGH
     Dosage: 15 ML, QID
     Route: 048
     Dates: start: 20101112, end: 20101216
  2. NEXAVAR [Suspect]
     Dosage: 400 MG, QD
     Route: 048
     Dates: start: 20101125, end: 20101216
  3. DEXTROMETHORPHAN HYDROBROMIDE [Concomitant]
     Indication: PROPHYLAXIS
     Dosage: DAILY DOSE 60 MG
     Route: 048
     Dates: start: 20101216, end: 20101216
  4. BARACLUDE [Concomitant]
     Indication: HEPATITIS B
     Dosage: DAILY DOSE .5 MG
     Route: 048
     Dates: start: 20101126, end: 20101216
  5. NOREPINEPHRINE BITARTRATE [Concomitant]
     Indication: PROPHYLAXIS
     Dosage: 16 MG, ONCE
     Route: 042
     Dates: start: 20101217, end: 20101217
  6. AMLODIPINE [Concomitant]
     Indication: HYPERTENSION
     Dosage: 5 MG, QD
     Route: 048
     Dates: start: 20101112, end: 20101216
  7. COUMADIN [Suspect]
     Indication: PULMONARY EMBOLISM
     Dosage: DAILY DOSE 4 MG
     Route: 048
     Dates: start: 20091031, end: 20101004
  8. NEXAVAR [Suspect]
     Indication: HEPATIC NEOPLASM MALIGNANT
     Dosage: 400 MG, BID
     Route: 048
     Dates: start: 20101105, end: 20101125
  9. SODIUM BICARBONATE [Concomitant]
     Indication: PROPHYLAXIS
     Dosage: 120 ML, ONCE
     Route: 042
     Dates: start: 20101216, end: 20101216
  10. MORPHINE HYDROCHLORIDE [Concomitant]
     Indication: ABDOMINAL PAIN
     Dosage: DAILY DOSE 5 MG
     Route: 030
     Dates: start: 20101217, end: 20101217

REACTIONS (4)
  - MULTI-ORGAN FAILURE [None]
  - NEOPLASM MALIGNANT [None]
  - HEPATIC NEOPLASM MALIGNANT [None]
  - VOMITING [None]
